FAERS Safety Report 4535548-2 (Version None)
Quarter: 2004Q4

REPORT INFORMATION
  Report Type: 
  Country: None (occurrence: None)
  Receive Date: 20041214
  Receipt Date: 20040929
  Transmission Date: 20050328
  Serious: No
  Sender: FDA-Public Use
  Company Number: USA040979686

PATIENT
  Age: 41 Year
  Sex: Male
  Weight: 82 kg

DRUGS (1)
  1. CIALIS [Suspect]
     Dosage: 20 MG AS NEEDED
     Dates: start: 20040301

REACTIONS (5)
  - DYSPEPSIA [None]
  - DYSPHAGIA [None]
  - MUSCLE CRAMP [None]
  - STOMACH DISCOMFORT [None]
  - THROAT TIGHTNESS [None]
